FAERS Safety Report 11132553 (Version 1)
Quarter: 2015Q2

REPORT INFORMATION
  Report Type: Spontaneous
  Country: US (occurrence: US)
  Receive Date: 20150522
  Receipt Date: 20150522
  Transmission Date: 20150821
  Serious: No
  Sender: FDA-Public Use
  Company Number: US-LUNDBECK-DKLU1111812

PATIENT
  Sex: Male

DRUGS (2)
  1. ONFI [Suspect]
     Active Substance: CLOBAZAM
     Indication: SIMPLE PARTIAL SEIZURES
  2. ONFI [Suspect]
     Active Substance: CLOBAZAM
     Indication: PARTIAL SEIZURES
     Route: 065
     Dates: start: 20150319

REACTIONS (4)
  - Urticaria [Unknown]
  - Drug ineffective [Unknown]
  - Agitation [Unknown]
  - Aggression [Unknown]
